FAERS Safety Report 9484008 (Version 3)
Quarter: 2013Q3

REPORT INFORMATION
  Report Type: Spontaneous
  Country: US (occurrence: US)
  Receive Date: 20130828
  Receipt Date: 20130905
  Transmission Date: 20140515
  Serious: No
  Sender: FDA-Public Use
  Company Number: US-BAXTER-2013BAX033208

PATIENT
  Sex: Male
  Weight: 90 kg

DRUGS (1)
  1. DIANEAL LOW CALCIUM [Suspect]
     Indication: PERITONEAL DIALYSIS
     Route: 033
     Dates: start: 201304

REACTIONS (3)
  - Catheter site inflammation [Recovered/Resolved]
  - Muscle spasms [Unknown]
  - Procedural pain [Recovered/Resolved]
